FAERS Safety Report 23333446 (Version 1)
Quarter: 2023Q4

REPORT INFORMATION
  Report Type: Spontaneous
  Country: RU (occurrence: RU)
  Receive Date: 20231222
  Receipt Date: 20231222
  Transmission Date: 20240109
  Serious: Yes (Other)
  Sender: FDA-Public Use
  Company Number: RU-009507513-2311RUS010066

PATIENT
  Age: 61 Year
  Sex: Male
  Weight: 63 kg

DRUGS (4)
  1. KEYTRUDA [Suspect]
     Active Substance: PEMBROLIZUMAB
     Indication: Colorectal cancer
     Dosage: 200 ONCE EVERY 21 DAYS
     Dates: start: 202210
  2. AXITINIB [Suspect]
     Active Substance: AXITINIB
     Indication: Metastatic renal cell carcinoma
     Dosage: UNK
     Dates: start: 202210
  3. AXITINIB [Suspect]
     Active Substance: AXITINIB
     Indication: Metastases to lung
  4. AXITINIB [Suspect]
     Active Substance: AXITINIB
     Indication: Metastases to liver

REACTIONS (5)
  - Hypothyroidism [Recovered/Resolved]
  - Hypertension [Unknown]
  - Diarrhoea [Unknown]
  - Asthenia [Unknown]
  - Therapy partial responder [Unknown]

NARRATIVE: CASE EVENT DATE: 20221101
